FAERS Safety Report 15698263 (Version 2)
Quarter: 2019Q1

REPORT INFORMATION
  Report Type: Spontaneous
  Country: CA (occurrence: CA)
  Receive Date: 20181207
  Receipt Date: 20190307
  Transmission Date: 20190417
  Serious: Yes (Other)
  Sender: FDA-Public Use
  Company Number: CA-CELLTRION INC.-2018CA022333

PATIENT

DRUGS (9)
  1. INFLECTRA [Suspect]
     Active Substance: INFLIXIMAB-DYYB
     Dosage: 255 MG, EVERY 0,2,6 WEEKS, THEN EVERY 8 WEEKS
     Route: 042
     Dates: start: 20180824
  2. IRON [Concomitant]
     Active Substance: IRON
     Dosage: UNK
  3. CORTIFOAM [Concomitant]
     Active Substance: HYDROCORTISONE ACETATE
     Dosage: UNK
  4. INFLECTRA [Suspect]
     Active Substance: INFLIXIMAB-DYYB
     Dosage: 255 MG, EVERY 0,2,6 WEEKS, THEN EVERY 8 WEEKS
     Route: 042
     Dates: start: 20181120
  5. METHOTREXATE. [Concomitant]
     Active Substance: METHOTREXATE
     Dosage: UNK
  6. INFLECTRA [Suspect]
     Active Substance: INFLIXIMAB-DYYB
     Dosage: 255 MG, EVERY 0,2,6 WEEKS, THEN EVERY 8 WEEKS
     Route: 042
     Dates: start: 20180920
  7. INFLECTRA [Suspect]
     Active Substance: INFLIXIMAB-DYYB
     Indication: CROHN^S DISEASE
     Dosage: 255 MG, EVERY 0,2,6 WEEKS, THEN EVERY 8 WEEKS
     Route: 042
     Dates: start: 20180813
  8. INFLECTRA [Suspect]
     Active Substance: INFLIXIMAB-DYYB
     Dosage: 300 MG, (EVERY 4 WEEKS)
     Route: 042
  9. PREDNISONE. [Concomitant]
     Active Substance: PREDNISONE
     Dosage: UNK
     Dates: start: 20180702, end: 201809

REACTIONS (6)
  - Drug effect incomplete [Not Recovered/Not Resolved]
  - Faecal calprotectin increased [Unknown]
  - Gastrointestinal inflammation [Unknown]
  - Condition aggravated [Unknown]
  - Blood pressure fluctuation [Unknown]
  - Product use issue [Unknown]

NARRATIVE: CASE EVENT DATE: 20180824
